FAERS Safety Report 5122704-8 (Version None)
Quarter: 2006Q4

REPORT INFORMATION
  Report Type: 
  Country: None (occurrence: None)
  Receive Date: 20061005
  Receipt Date: 20061005
  Transmission Date: 20070319
  Serious: Yes (Other)
  Sender: FDA-Public Use
  Company Number: None

PATIENT
  Age: 46 Year
  Sex: Female
  Weight: 68.4932 kg

DRUGS (1)
  1. CLINDAMYCIN [Suspect]
     Indication: BREAST CANCER
     Dosage: 600 MG IV TID [2ND DOSE 2200]
     Route: 042
     Dates: start: 20060929

REACTIONS (2)
  - INFUSION RELATED REACTION [None]
  - PRURITUS GENERALISED [None]
